FAERS Safety Report 15041104 (Version 1)
Quarter: 2018Q2

REPORT INFORMATION
  Report Type: Other
  Country: CN (occurrence: CN)
  Receive Date: 20180621
  Receipt Date: 20180621
  Transmission Date: 20180711
  Serious: Yes (Life-Threatening, Hospitalization, Other)
  Sender: FDA-Public Use
  Company Number: CN-DENTSPLY-2018SCDP000235

PATIENT
  Age: 50 Year
  Sex: Female

DRUGS (3)
  1. PROPOFOL. [Concomitant]
     Active Substance: PROPOFOL
     Indication: GENERAL ANAESTHESIA
     Dosage: UNK
     Route: 042
     Dates: start: 2014
  2. LIDOCAINE. [Suspect]
     Active Substance: LIDOCAINE
     Indication: LOCAL ANAESTHESIA
     Dosage: UNK
     Route: 061
     Dates: start: 2014
  3. OXYGEN. [Concomitant]
     Active Substance: OXYGEN
     Indication: PRODUCT USED FOR UNKNOWN INDICATION
     Dosage: UNK
     Route: 045
     Dates: start: 2014

REACTIONS (2)
  - Toxicity to various agents [None]
  - Pulmonary alveolar haemorrhage [None]

NARRATIVE: CASE EVENT DATE: 2014
